FAERS Safety Report 9661038 (Version 8)
Quarter: 2018Q2

REPORT INFORMATION
  Report Type: Spontaneous
  Country: US (occurrence: US)
  Receive Date: 20131031
  Receipt Date: 20180402
  Transmission Date: 20180711
  Serious: Yes (Hospitalization, Other)
  Sender: FDA-Public Use
  Company Number: US-GLAXOSMITHKLINE-A1047795A

PATIENT
  Age: 59 Year
  Sex: Male
  Weight: 82 kg

DRUGS (7)
  1. FLOLAN [Suspect]
     Active Substance: EPOPROSTENOL SODIUM
     Indication: PULMONARY ARTERIAL HYPERTENSION
     Dosage: 27 NG/KG/MIN CONTINUOUSLYCONCENTRATION 45,000 NG/MLVIAL STRENGTH 1.5 MG
     Route: 042
     Dates: start: 20020726
  2. FLOLAN [Suspect]
     Active Substance: EPOPROSTENOL SODIUM
     Dosage: 29 NG/KG/MIN, CO
     Route: 042
  3. FLOLAN [Suspect]
     Active Substance: EPOPROSTENOL SODIUM
     Dosage: 27 NG/KG/MIN CONTINUOUS; CONCENTRATION: 45,000 NG/ML; PUMP RATE: 77 ML/DAY; VIAL STRENGTH: 1.5 MG
     Route: 042
     Dates: start: 20070614
  4. FLOLAN [Suspect]
     Active Substance: EPOPROSTENOL SODIUM
     Dosage: 34.7 NG/KG/MIN, CO
     Route: 042
  5. FLOLAN [Suspect]
     Active Substance: EPOPROSTENOL SODIUM
     Indication: PULMONARY ARTERIAL HYPERTENSION
     Route: 042
  6. COUMADIN [Concomitant]
     Active Substance: WARFARIN SODIUM
  7. WARFARIN [Concomitant]
     Active Substance: WARFARIN

REACTIONS (4)
  - Complication associated with device [Recovered/Resolved]
  - Nephrolithiasis [Unknown]
  - Device related infection [Unknown]
  - Biopsy kidney [Recovered/Resolved]

NARRATIVE: CASE EVENT DATE: 20131028
